FAERS Safety Report 4648336-3 (Version None)
Quarter: 2005Q2

REPORT INFORMATION
  Report Type: 
  Country: None (occurrence: None)
  Receive Date: 20050427
  Receipt Date: 20050415
  Transmission Date: 20051028
  Serious: Yes (Death)
  Sender: FDA-Public Use
  Company Number: HQWYE092518APR05

PATIENT
  Age: 86 Year
  Sex: Male

DRUGS (5)
  1. CORDARONE [Suspect]
     Dosage: 200 MG 1X PER 1 DAY, ORAL
     Route: 048
     Dates: start: 20030826, end: 20030908
  2. ARAVA [Suspect]
     Dosage: 20 MG 1X PER 1 DAY, ORAL
     Route: 048
     Dates: start: 20030115, end: 20030911
  3. FUROSEMIDE [Concomitant]
  4. GLIPIZDE (GLIPIZIDE) [Concomitant]
  5. ATENOLOL [Concomitant]

REACTIONS (6)
  - BRONCHITIS [None]
  - CLOSTRIDIAL INFECTION [None]
  - CONDITION AGGRAVATED [None]
  - HEPATIC ENZYME INCREASED [None]
  - HYPOGLYCAEMIA [None]
  - RENAL FAILURE CHRONIC [None]
